FAERS Safety Report 6111105-1 (Version None)
Quarter: 2009Q1

REPORT INFORMATION
  Report Type: 
  Country: None (occurrence: None)
  Receive Date: 20090309
  Receipt Date: 20090309
  Transmission Date: 20090719
  Serious: No
  Sender: FDA-Public Use
  Company Number: None

PATIENT
  Age: 30 Year
  Sex: Female
  Weight: 77.1115 kg

DRUGS (1)
  1. MIRENA [Suspect]
     Indication: CONTRACEPTION
     Dosage: INTRA-UTERINE
     Route: 015
     Dates: start: 20050105, end: 20090304

REACTIONS (5)
  - ABDOMINAL DISTENSION [None]
  - ACNE [None]
  - HEADACHE [None]
  - HYPERTENSION [None]
  - VAGINITIS BACTERIAL [None]
